FAERS Safety Report 14007519 (Version 1)
Quarter: 2017Q3

REPORT INFORMATION
  Report Type: Spontaneous
  Country: US (occurrence: None)
  Receive Date: 20170924
  Receipt Date: 20170924
  Transmission Date: 20171128
  Serious: No
  Sender: FDA-Public Use
  Company Number: None

PATIENT
  Age: 54 Year
  Sex: Male

DRUGS (1)
  1. AFINITOR [Suspect]
     Active Substance: EVEROLIMUS

REACTIONS (5)
  - Rash [None]
  - Pruritus [None]
  - Stomatitis [None]
  - Oral pain [None]
  - Dry mouth [None]

NARRATIVE: CASE EVENT DATE: 20170906
